FAERS Safety Report 7072459-5 (Version None)
Quarter: 2010Q4

REPORT INFORMATION
  Report Type: 
  Country: None (occurrence: None)
  Receive Date: 20101029
  Receipt Date: 20100201
  Transmission Date: 20110411
  Serious: Yes (Other)
  Sender: FDA-Public Use
  Company Number: A0842337A

PATIENT
  Age: 71 Year
  Sex: Female

DRUGS (9)
  1. ADVAIR DISKUS 100/50 [Suspect]
     Indication: CHRONIC OBSTRUCTIVE PULMONARY DISEASE
     Dosage: 1PUFF TWICE PER DAY
     Route: 055
     Dates: start: 20091201, end: 20100120
  2. METOPROLOL [Concomitant]
  3. ACIPHEX [Concomitant]
  4. PLAVIX [Concomitant]
  5. TRICOR [Concomitant]
  6. CRESTOR [Concomitant]
  7. LEXAPRO [Concomitant]
  8. CLONAZEPAM [Concomitant]
  9. ASPIRIN [Concomitant]

REACTIONS (1)
  - GLAUCOMA [None]
